FAERS Safety Report 8820178 (Version 2)
Quarter: 2012Q4

REPORT INFORMATION
  Report Type: 
  Country: FR (occurrence: FR)
  Receive Date: 20121002
  Receipt Date: 20121111
  Transmission Date: 20130627
  Serious: Yes (Hospitalization)
  Sender: FDA-Public Use
  Company Number: PHHY2012FR084941

PATIENT
  Sex: Male

DRUGS (1)
  1. RIAMET [Suspect]
     Indication: PLASMODIUM FALCIPARUM INFECTION
     Dosage: 4 DF, BID
     Route: 048
     Dates: start: 20120820, end: 20120823

REACTIONS (7)
  - Haemolytic anaemia [Recovering/Resolving]
  - Lymphangitis [Recovering/Resolving]
  - Oedema peripheral [Recovered/Resolved]
  - Oedema [Recovering/Resolving]
  - Normochromic normocytic anaemia [Recovering/Resolving]
  - Blood folate decreased [Recovering/Resolving]
  - Serum ferritin increased [Unknown]
